FAERS Safety Report 10154719 (Version 2)
Quarter: 2014Q2

REPORT INFORMATION
  Report Type: Spontaneous
  Country: US (occurrence: None)
  Receive Date: 20140502
  Receipt Date: 20140515
  Transmission Date: 20141212
  Serious: Yes (Hospitalization)
  Sender: FDA-Public Use
  Company Number: UTC-047674

PATIENT
  Age: 44 Year
  Sex: Male
  Weight: 66.68 kg

DRUGS (2)
  1. TYVASO [Suspect]
     Indication: COR PULMONALE CHRONIC
     Route: 055
     Dates: start: 20140404, end: 20140415
  2. WARFARIN (WARFARIN) [Concomitant]

REACTIONS (2)
  - Tuberculosis [None]
  - Haemoptysis [None]
